FAERS Safety Report 9767532 (Version 1)
Quarter: 2013Q4

REPORT INFORMATION
  Report Type: Spontaneous
  Country: US (occurrence: US)
  Receive Date: 20131217
  Receipt Date: 20131217
  Transmission Date: 20140711
  Serious: Yes (Other)
  Sender: FDA-Public Use
  Company Number: US-GILEAD-2009-0022880

PATIENT
  Age: 83 Year
  Sex: Male

DRUGS (1)
  1. VIREAD [Suspect]
     Indication: HEPATITIS B
     Route: 048
     Dates: start: 200810

REACTIONS (4)
  - Alanine aminotransferase increased [Unknown]
  - Viral load increased [Unknown]
  - Alpha 1 foetoprotein increased [Unknown]
  - Creatinine renal clearance decreased [Unknown]
